FAERS Safety Report 19086861 (Version 1)
Quarter: 2021Q2

REPORT INFORMATION
  Report Type: Spontaneous
  Country: US (occurrence: US)
  Receive Date: 20210401
  Receipt Date: 20210401
  Transmission Date: 20210717
  Serious: No
  Sender: FDA-Public Use
  Company Number: None

PATIENT
  Age: 72 Year
  Sex: Male
  Weight: 113.4 kg

DRUGS (2)
  1. CEFPODOXIME PROXETIL. [Suspect]
     Active Substance: CEFPODOXIME PROXETIL
     Indication: TOE AMPUTATION
     Route: 048
     Dates: start: 20200706, end: 20200804
  2. PIPERACILLIN/TAZOBACTAM [Suspect]
     Active Substance: PIPERACILLIN SODIUM\TAZOBACTAM SODIUM
     Dosage: ?          OTHER ROUTE:IV?
     Dates: start: 20200804, end: 20200806

REACTIONS (2)
  - Rash [None]
  - Staphylococcal infection [None]

NARRATIVE: CASE EVENT DATE: 20200804
